FAERS Safety Report 6730207-X (Version None)
Quarter: 2010Q2

REPORT INFORMATION
  Report Type: 
  Country: None (occurrence: None)
  Receive Date: 20100518
  Receipt Date: 20100510
  Transmission Date: 20101027
  Serious: Yes (Other)
  Sender: FDA-Public Use
  Company Number: US-SANOFI-AVENTIS-2010SA027018

PATIENT
  Age: 72 Year
  Sex: Male

DRUGS (6)
  1. MULTAQ [Suspect]
     Route: 048
     Dates: start: 20090101
  2. COUMADIN [Concomitant]
     Dosage: 4MG FOR 5DAYS, 2MG FOR 2 DAYS
  3. COUMADIN [Concomitant]
  4. PRAVASTATIN [Concomitant]
  5. PREVACID [Concomitant]
  6. FLONASE [Concomitant]

REACTIONS (2)
  - ATRIAL FIBRILLATION [None]
  - HEART RATE IRREGULAR [None]
